FAERS Safety Report 4765393-4 (Version None)
Quarter: 2005Q3

REPORT INFORMATION
  Report Type: 
  Country: None (occurrence: None)
  Receive Date: 20050908
  Receipt Date: 20050908
  Transmission Date: 20060218
  Serious: Yes (Hospitalization)
  Sender: FDA-Public Use
  Company Number: None

PATIENT
  Sex: Male
  Weight: 96.1626 kg

DRUGS (1)
  1. FORTAZ [Suspect]
     Indication: PNEUMONIA
     Dosage: 1 GRAM   EVERY 8 HOURS  IV
     Route: 042
     Dates: start: 20050930, end: 20050930

REACTIONS (2)
  - INFUSION RELATED REACTION [None]
  - RASH [None]
